FAERS Safety Report 12857965 (Version 2)
Quarter: 2017Q3

REPORT INFORMATION
  Report Type: Spontaneous
  Country: US (occurrence: US)
  Receive Date: 20161018
  Receipt Date: 20170927
  Transmission Date: 20171127
  Serious: No
  Sender: FDA-Public Use
  Company Number: US-SA-2016SA152022

PATIENT

DRUGS (3)
  1. LEMTRADA [Suspect]
     Active Substance: ALEMTUZUMAB
     Route: 041
     Dates: start: 20160808, end: 20160808
  2. LEMTRADA [Suspect]
     Active Substance: ALEMTUZUMAB
     Route: 041
     Dates: start: 2016, end: 2016
  3. BENADRYL [Concomitant]
     Active Substance: DIPHENHYDRAMINE HYDROCHLORIDE

REACTIONS (3)
  - Alanine aminotransferase increased [Recovered/Resolved]
  - Musculoskeletal pain [Recovered/Resolved]
  - Chest discomfort [Recovered/Resolved]

NARRATIVE: CASE EVENT DATE: 20160808
